FAERS Safety Report 7709632-6 (Version None)
Quarter: 2011Q3

REPORT INFORMATION
  Report Type: 
  Country: None (occurrence: None)
  Receive Date: 20110825
  Receipt Date: 20110818
  Transmission Date: 20111222
  Serious: Yes (Death)
  Sender: FDA-Public Use
  Company Number: US-GLAXOSMITHKLINE-A0922918A

PATIENT
  Age: 59 Year
  Sex: Female
  Weight: 60 kg

DRUGS (11)
  1. DILANTIN [Concomitant]
  2. LORTAB [Concomitant]
  3. TYKERB [Suspect]
     Indication: BREAST CANCER
     Dosage: 1250MG PER DAY
     Route: 065
     Dates: start: 20100914, end: 20110304
  4. HERCEPTIN [Concomitant]
     Indication: BREAST CANCER
     Dosage: 140MG WEEKLY
     Route: 042
     Dates: start: 20100831, end: 20110323
  5. LASIX [Concomitant]
  6. ATIVAN [Concomitant]
  7. AREDIA [Concomitant]
     Indication: METASTASES TO BONE
     Route: 042
     Dates: start: 20000924, end: 20110227
  8. ZOFRAN [Concomitant]
  9. LEVAQUIN [Concomitant]
  10. UNSPECIFIED MEDICATION [Concomitant]
  11. NEUPOGEN [Concomitant]

REACTIONS (2)
  - BREAST CANCER [None]
  - TREATMENT FAILURE [None]
